FAERS Safety Report 4964291-0 (Version None)
Quarter: 2006Q1

REPORT INFORMATION
  Report Type: 
  Country: None (occurrence: None)
  Receive Date: 20060331
  Receipt Date: 20060322
  Transmission Date: 20060701
  Serious: Yes (Death, Other)
  Sender: FDA-Public Use
  Company Number: 163-20785-06020287

PATIENT
  Age: 72 Year
  Sex: Male
  Weight: 64.8644 kg

DRUGS (6)
  1. THALOMID [Suspect]
     Indication: MULTIPLE MYELOMA
     Dosage: SEE IMAGE, ORAL
     Route: 048
     Dates: start: 20060201, end: 20060224
  2. THALOMID [Suspect]
     Indication: MULTIPLE MYELOMA
     Dosage: SEE IMAGE, ORAL
     Route: 048
     Dates: start: 20060204
  3. PERCOCET [Concomitant]
  4. ATENOLOL [Concomitant]
  5. GLYBURIDE [Concomitant]
  6. WATER PILL (DIURETICS) [Concomitant]

REACTIONS (9)
  - ASTHENIA [None]
  - DECREASED APPETITE [None]
  - DIALYSIS [None]
  - DISEASE PROGRESSION [None]
  - HAEMOPTYSIS [None]
  - LETHARGY [None]
  - RENAL FAILURE ACUTE [None]
  - SPEECH DISORDER [None]
  - WEIGHT DECREASED [None]
